FAERS Safety Report 12741469 (Version 1)
Quarter: 2016Q3

REPORT INFORMATION
  Report Type: Spontaneous
  Country: IL (occurrence: US)
  Receive Date: 20160913
  Receipt Date: 20160913
  Transmission Date: 20161109
  Serious: Yes (Hospitalization)
  Sender: FDA-Public Use
  Company Number: None

PATIENT
  Age: 64 Year
  Sex: Male
  Weight: 78 kg

DRUGS (8)
  1. SOVALDI [Suspect]
     Active Substance: SOFOSBUVIR
     Indication: HEPATITIS C
     Dosage: 1 PILL+1 PILL (2 PILLS TOTAL) EVERY DAY QD
     Route: 048
     Dates: start: 20160713
  2. AQUA CREAM [Concomitant]
  3. AMISTON [Concomitant]
  4. RIBAVIRIN. [Suspect]
     Active Substance: RIBAVIRIN
     Indication: HEPATITIS C
     Dosage: 3 PILLS
     Route: 048
     Dates: start: 20160713, end: 20160904
  5. BETACORTEN [Concomitant]
  6. BONDORMIN [Concomitant]
     Active Substance: BROTIZOLAM
  7. LTTEERS [Concomitant]
  8. DAKLINZA [Suspect]
     Active Substance: DACLATASVIR

REACTIONS (3)
  - Drug eruption [None]
  - Dermatitis [None]
  - Rash pruritic [None]

NARRATIVE: CASE EVENT DATE: 20160911
